FAERS Safety Report 8232574 (Version 4)
Quarter: 2013Q2

REPORT INFORMATION
  Report Type: Spontaneous
  Country: JP (occurrence: JP)
  Receive Date: 20111107
  Receipt Date: 20130530
  Transmission Date: 20140414
  Serious: Yes (Hospitalization)
  Sender: FDA-Public Use
  Company Number: JP-NOVOPROD-338360

PATIENT
  Age: 60 Year
  Sex: Male
  Weight: 67 kg

DRUGS (12)
  1. VICTOZA HIKACHU INJECTION [Suspect]
     Indication: TYPE 2 DIABETES MELLITUS
     Dosage: 0.3 MG, QD
     Route: 058
     Dates: start: 20111010
  2. VICTOZA HIKACHU INJECTION [Suspect]
     Dosage: 0.6 MG, QD
     Route: 058
     Dates: start: 20111017
  3. VICTOZA HIKACHU INJECTION [Suspect]
     Dosage: 0.9 MG, QD
     Route: 058
     Dates: start: 20111024, end: 20111025
  4. NOVORAPID CHU FLEXPEN [Concomitant]
     Indication: TYPE 2 DIABETES MELLITUS
     Dosage: 22 U, QD
     Route: 058
     Dates: start: 201001
  5. BLOPRESS [Concomitant]
     Indication: HYPERTENSION
     Dosage: 8 MG, QD
     Route: 048
     Dates: start: 20111012, end: 20111025
  6. NORVASC [Concomitant]
     Indication: HYPERTENSION
     Dosage: 5 MG, QD
     Route: 048
     Dates: start: 20111019, end: 20111027
  7. ALESION [Concomitant]
     Indication: PSORIASIS
     Dosage: 20 MG, QD
     Route: 048
     Dates: start: 20110930
  8. LAMISIL [Concomitant]
     Indication: TINEA INFECTION
     Dosage: 125 MG, QD
     Route: 048
     Dates: start: 20111018
  9. MYSER                              /00115501/ [Concomitant]
     Indication: PSORIASIS
     Dosage: /CU
  10. MAGLAX [Concomitant]
     Indication: CONSTIPATION
     Dosage: 750 MG, QD
     Route: 048
     Dates: start: 20111013, end: 20111021
  11. PURSENNID                          /00142207/ [Concomitant]
  12. LANTUS [Concomitant]
     Indication: TYPE 2 DIABETES MELLITUS
     Dosage: 12 U, QD
     Route: 058
     Dates: start: 201101, end: 20111023

REACTIONS (1)
  - Ileus paralytic [Recovered/Resolved]
